FAERS Safety Report 9138829 (Version 1)
Quarter: 2013Q1

REPORT INFORMATION
  Report Type: Spontaneous
  Country: US (occurrence: US)
  Receive Date: 20130305
  Receipt Date: 20130305
  Transmission Date: 20140127
  Serious: Yes (Other)
  Sender: FDA-Public Use
  Company Number: US-ENDO PHARMACEUTICALS INC.-PERC20120116

PATIENT
  Sex: Female

DRUGS (1)
  1. PERCOCET [Suspect]
     Indication: PAIN IN JAW
     Dosage: UNKNOWN
     Route: 048
     Dates: start: 2010, end: 2012

REACTIONS (3)
  - Drug dependence [Not Recovered/Not Resolved]
  - Nausea [Not Recovered/Not Resolved]
  - Vomiting [Not Recovered/Not Resolved]
